FAERS Safety Report 5408064-3 (Version None)
Quarter: 2007Q3

REPORT INFORMATION
  Report Type: 
  Country: None (occurrence: None)
  Receive Date: 20070808
  Receipt Date: 20070801
  Transmission Date: 20080115
  Serious: Yes (Other)
  Sender: FDA-Public Use
  Company Number: PHEH2007US10651

PATIENT
  Sex: Male

DRUGS (4)
  1. TEKTURNA [Suspect]
     Dosage: 150 MG, QD
  2. DIOVAN HCT [Suspect]
     Dosage: 320 VALSARTAN/25MG HCTZ
  3. ACEON [Concomitant]
  4. AMLODIPINE [Concomitant]

REACTIONS (6)
  - COUGH [None]
  - DIZZINESS POSTURAL [None]
  - FATIGUE [None]
  - INSOMNIA [None]
  - TINNITUS [None]
  - URINE OUTPUT DECREASED [None]
